FAERS Safety Report 9745306 (Version 1)
Quarter: 2013Q4

REPORT INFORMATION
  Report Type: Spontaneous
  Country: PT (occurrence: PT)
  Receive Date: 20131211
  Receipt Date: 20131211
  Transmission Date: 20140711
  Serious: Yes (Other)
  Sender: FDA-Public Use
  Company Number: PT-JNJFOC-20131201331

PATIENT
  Age: 25 Year
  Sex: Female

DRUGS (5)
  1. DOXORUBICIN [Suspect]
     Indication: BURKITT^S LYMPHOMA STAGE III
     Route: 042
  2. CYCLOPHOSPHAMIDE [Suspect]
     Indication: BURKITT^S LYMPHOMA STAGE III
     Route: 065
  3. VINCRISTINE [Suspect]
     Indication: BURKITT^S LYMPHOMA STAGE III
     Route: 065
  4. PREDNISONE [Suspect]
     Indication: BURKITT^S LYMPHOMA STAGE III
     Route: 065
  5. RITUXIMAB [Suspect]
     Indication: BURKITT^S LYMPHOMA STAGE III
     Route: 065

REACTIONS (4)
  - Malignant neoplasm progression [Unknown]
  - Exposure during pregnancy [Recovered/Resolved]
  - Premature labour [Recovered/Resolved]
  - Blood lactate dehydrogenase increased [Unknown]
